FAERS Safety Report 10717878 (Version 2)
Quarter: 2015Q2

REPORT INFORMATION
  Report Type: Report from Study
  Country: NL (occurrence: NL)
  Receive Date: 20150116
  Receipt Date: 20150601
  Transmission Date: 20150821
  Serious: Yes (Hospitalization)
  Sender: FDA-Public Use
  Company Number: NL-ABBVIE-14P-114-1327603-00

PATIENT
  Age: 67 Year
  Sex: Male
  Weight: 75 kg

DRUGS (1)
  1. DUODOPA [Suspect]
     Active Substance: CARBIDOPA\LEVODOPA
     Indication: PARKINSON^S DISEASE
     Dosage: SEE NARRATIVE
     Route: 050
     Dates: start: 20130114

REACTIONS (6)
  - Stress [Unknown]
  - Delusion [Unknown]
  - Dementia [Unknown]
  - Parkinson^s disease [Unknown]
  - Confusional state [Unknown]
  - Hallucination [Unknown]

NARRATIVE: CASE EVENT DATE: 20141225
